FAERS Safety Report 9412216 (Version 2)
Quarter: 2013Q3

REPORT INFORMATION
  Report Type: Report from Study
  Country: CA (occurrence: CA)
  Receive Date: 20130722
  Receipt Date: 20130725
  Transmission Date: 20140515
  Serious: Yes (Death, Hospitalization)
  Sender: FDA-Public Use
  Company Number: PHHY2012CA039380

PATIENT
  Age: 70 Year
  Sex: Male

DRUGS (7)
  1. SANDOSTATIN LAR [Suspect]
     Indication: NEUROENDOCRINE TUMOUR
     Dosage: 20 MG, QMO
     Route: 030
     Dates: start: 20100614, end: 20130514
  2. AFINITOR [Suspect]
     Indication: NEUROENDOCRINE TUMOUR
     Dosage: 10 MG, QD
     Route: 048
     Dates: start: 20110424, end: 20120124
  3. FLOMAX//TAMSULOSIN HYDROCHLORIDE [Concomitant]
  4. SYNTHROID [Concomitant]
  5. PRO-CAL-D [Concomitant]
  6. VITAMIN B12 [Concomitant]
  7. NAPROSYN [Concomitant]

REACTIONS (10)
  - Death [Fatal]
  - Myocardial ischaemia [Recovered/Resolved]
  - Angina pectoris [Recovered/Resolved]
  - Arterial restenosis [Recovered/Resolved]
  - Arterial stenosis [Recovered/Resolved]
  - Bradycardia [Recovered/Resolved]
  - Malignant neoplasm progression [Unknown]
  - Neuroendocrine tumour [Unknown]
  - Local swelling [Unknown]
  - Diarrhoea [Unknown]
